FAERS Safety Report 8177375-3 (Version None)
Quarter: 2012Q1

REPORT INFORMATION
  Report Type: 
  Country: None (occurrence: None)
  Receive Date: 20120301
  Receipt Date: 20120221
  Transmission Date: 20120608
  Serious: Yes (Hospitalization)
  Sender: FDA-Public Use
  Company Number: JP-ROCHE-1014743

PATIENT
  Sex: Male
  Weight: 45 kg

DRUGS (15)
  1. PYDOXAL [Concomitant]
     Indication: PROPHYLAXIS
     Route: 048
     Dates: start: 20090330, end: 20101120
  2. ZOLPIDEM [Concomitant]
     Indication: INSOMNIA
     Route: 048
     Dates: start: 20100706
  3. PREDNISOLONE [Concomitant]
     Route: 048
     Dates: start: 20090609, end: 20100101
  4. PREDNISOLONE [Concomitant]
     Route: 048
     Dates: start: 20101001, end: 20101207
  5. NORVASC [Concomitant]
     Indication: HYPERTENSION
     Route: 048
     Dates: start: 20100622
  6. VOLTAREN [Concomitant]
     Indication: RHEUMATOID ARTHRITIS
     Dosage: SINGLE USE
     Route: 054
     Dates: start: 20090512
  7. RHEUMATREX [Concomitant]
     Indication: RHEUMATOID ARTHRITIS
     Dosage: 4-10MG/WEEK
     Route: 048
  8. FOLIC ACID [Concomitant]
     Indication: PROPHYLAXIS
     Route: 048
     Dates: start: 20090316
  9. ISONIAZID [Concomitant]
     Indication: ANTIBIOTIC PROPHYLAXIS
     Route: 048
     Dates: start: 20090811, end: 20101120
  10. LOXOPROFEN [Concomitant]
     Indication: RHEUMATOID ARTHRITIS
     Route: 048
     Dates: start: 20090309
  11. PREDNISOLONE [Concomitant]
     Route: 048
     Dates: start: 20101208
  12. RABEPRAZOLE SODIUM [Concomitant]
     Indication: GASTRIC ULCER
     Route: 048
     Dates: start: 20090309
  13. ACTEMRA [Suspect]
     Indication: RHEUMATOID ARTHRITIS
     Route: 041
     Dates: start: 20100807, end: 20100907
  14. PREDNISOLONE [Concomitant]
     Indication: RHEUMATOID ARTHRITIS
     Route: 048
     Dates: start: 20090421, end: 20090101
  15. POTASSIUM IODIDE [Concomitant]
     Indication: HYPERTHYROIDISM
     Route: 048
     Dates: start: 20100615

REACTIONS (5)
  - ERYTHEMA NODOSUM [None]
  - INFECTION [None]
  - RHEUMATOID VASCULITIS [None]
  - GLOMERULONEPHRITIS [None]
  - HYPOAESTHESIA [None]
